FAERS Safety Report 18138857 (Version 2)
Quarter: 2022Q4

REPORT INFORMATION
  Report Type: Spontaneous
  Country: DE (occurrence: DE)
  Receive Date: 20200812
  Receipt Date: 20221017
  Transmission Date: 20230112
  Serious: Yes (Hospitalization)
  Sender: FDA-Public Use
  Company Number: DE-ADRED-05219-01

PATIENT
  Age: 52 Year
  Sex: Female

DRUGS (8)
  1. ALECTINIB [Suspect]
     Active Substance: ALECTINIB
     Indication: Product used for unknown indication
     Dosage: NK MG, TABLETTEN
     Route: 065
  2. PANTOPRAZOLE SODIUM [Concomitant]
     Active Substance: PANTOPRAZOLE SODIUM
     Dosage: 40 MG, 1-0-0-0, TABLETTEN
     Route: 048
  3. CHOLECALCIFEROL [Concomitant]
     Active Substance: CHOLECALCIFEROL
     Dosage: 20.000 IE / WOCHE, SONNTAG, KAPSELN
     Route: 048
  4. METOCLOPRAMIDE [Concomitant]
     Active Substance: METOCLOPRAMIDE
     Dosage: 10 MG, 3X, TABLETTEN
     Route: 048
  5. FENTANYL [Concomitant]
     Active Substance: FENTANYL
     Dosage: 12 MICROGRAM/H
     Route: 062
  6. METAMIZOL [Concomitant]
     Active Substance: METAMIZOLE SODIUM
     Dosage: 500 MG, 1-1-1-0, TABLETTEN
     Route: 048
  7. DEXAMETHASONE [Concomitant]
     Active Substance: DEXAMETHASONE
     Dosage: 4 MG, 0.5-0-0-0, TABLETTEN
     Route: 048
  8. KALINOR [Concomitant]
     Dosage: 600 MG, 1-1-0-0, KAPSELN
     Route: 048

REACTIONS (9)
  - Condition aggravated [Unknown]
  - Weight decreased [Unknown]
  - General physical health deterioration [Unknown]
  - Cough [Unknown]
  - Fatigue [Unknown]
  - Decreased appetite [Unknown]
  - Vomiting [Unknown]
  - Urinary tract infection [Unknown]
  - Asthenia [Unknown]
